FAERS Safety Report 9424826 (Version 2)
Quarter: 2013Q3

REPORT INFORMATION
  Report Type: Spontaneous
  Country: US (occurrence: US)
  Receive Date: 20130729
  Receipt Date: 20130926
  Transmission Date: 20140515
  Serious: No
  Sender: FDA-Public Use
  Company Number: US-PFIZER INC-2013218430

PATIENT
  Age: 51 Year
  Sex: Male
  Weight: 90.7 kg

DRUGS (17)
  1. CAMPTOSAR [Suspect]
     Indication: PANCREATIC CARCINOMA
     Dosage: 360 MG, EVERY 2 WEEKS
     Route: 042
     Dates: start: 20130626
  2. OXALIPLATIN [Concomitant]
     Indication: PANCREATIC CARCINOMA
     Dosage: 170 MG, EVERY 2 WEEKS
     Dates: start: 20130724, end: 20130807
  3. 5-FU [Concomitant]
     Indication: PANCREATIC CARCINOMA
     Dosage: 800 MG (BOLUS), EVERY 2 WEEKS
     Route: 040
     Dates: start: 20130724, end: 20130807
  4. 5-FU [Concomitant]
     Dosage: 4800 MG, 2 DAY PUMP, EVERY 2 WEEKS
     Route: 041
     Dates: start: 20130724, end: 20130807
  5. LEUCOVORIN [Concomitant]
     Indication: PANCREATIC CARCINOMA
     Dosage: 800 MG, EVERY 2 WEEKS
     Dates: start: 20130724, end: 20130807
  6. AMLODIPINE [Concomitant]
     Indication: BLOOD PRESSURE ABNORMAL
     Dosage: UNK
  7. COLACE [Concomitant]
     Dosage: UNK
  8. DULCOLAX [Concomitant]
     Dosage: UNK
  9. FLOMAX [Concomitant]
     Dosage: UNK
  10. GLIBURIDE/METFORMIN HYDROCHLORIDE [Concomitant]
     Dosage: UNK
  11. LORTAB [Concomitant]
     Dosage: UNK
  12. LEVEMIR [Concomitant]
     Dosage: UNK, 1X/DAY
  13. LOSARTAN [Concomitant]
     Dosage: UNK, 1X/DAY
  14. MIRALAX [Concomitant]
     Dosage: UNK
  15. NOVOLOG [Concomitant]
     Dosage: UNK
  16. COMPAZINE [Concomitant]
     Dosage: UNK
  17. TIZANIDINE [Concomitant]
     Dosage: UNK

REACTIONS (2)
  - Nystagmus [Recovered/Resolved]
  - Vertigo [Recovered/Resolved]
